FAERS Safety Report 23742752 (Version 1)
Quarter: 2024Q2

REPORT INFORMATION
  Report Type: Spontaneous
  Country: US (occurrence: None)
  Receive Date: 20240412
  Receipt Date: 20240412
  Transmission Date: 20240716
  Serious: No
  Sender: FDA-Public Use
  Company Number: None

PATIENT
  Age: 52 Year
  Sex: Female

DRUGS (1)
  1. ACTEMRA [Suspect]
     Active Substance: TOCILIZUMAB
     Indication: Rheumatoid arthritis
     Dosage: 800 MG EVERY 4 WEEKS INTRAVENOUS?
     Route: 042

REACTIONS (2)
  - Pneumonia [None]
  - Immune system disorder [None]

NARRATIVE: CASE EVENT DATE: 20240405
